FAERS Safety Report 8801417 (Version 5)
Quarter: 2013Q1

REPORT INFORMATION
  Report Type: Spontaneous
  Country: BR (occurrence: BR)
  Receive Date: 20120921
  Receipt Date: 20130211
  Transmission Date: 20140127
  Serious: Yes (Hospitalization)
  Sender: FDA-Public Use
  Company Number: BR-ROCHE-1127989

PATIENT
  Sex: Female
  Weight: 64 kg

DRUGS (12)
  1. XOLAIR [Suspect]
     Indication: ASTHMA
     Route: 065
     Dates: start: 20100101
  2. XOLAIR [Suspect]
     Route: 058
     Dates: start: 201207
  3. XOLAIR [Suspect]
     Route: 058
     Dates: start: 201208
  4. METFORMIN HYDROCHLORIDE [Concomitant]
  5. OMEPRAZOLE [Concomitant]
     Route: 065
  6. ALENIA (BRAZIL) [Concomitant]
     Dosage: 12/400 MCG
     Route: 065
     Dates: start: 20120920
  7. FLUIR [Concomitant]
     Route: 065
     Dates: start: 20120920
  8. CLINFAR [Concomitant]
  9. ENALAPRIL [Concomitant]
     Route: 065
  10. TORLOS H [Concomitant]
  11. AAS [Concomitant]
  12. D-CALSOR [Concomitant]
     Dosage: DRUG REPORTED AS D-CAL 600 + D (D-CAL 600 + D)
     Route: 065

REACTIONS (12)
  - Fatigue [Recovered/Resolved]
  - Asthma [Not Recovered/Not Resolved]
  - Injection site haematoma [Unknown]
  - Injection site discolouration [Unknown]
  - Injection site swelling [Unknown]
  - Drug ineffective [Unknown]
  - Gait disturbance [Unknown]
  - Discomfort [Unknown]
  - Incorrect route of drug administration [Unknown]
  - Anxiety [Recovering/Resolving]
  - Nervousness [Recovering/Resolving]
  - Dyspnoea [Recovering/Resolving]
